FAERS Safety Report 8483615-3 (Version None)
Quarter: 2012Q3

REPORT INFORMATION
  Report Type: 
  Country: None (occurrence: None)
  Receive Date: 20120702
  Receipt Date: 20120622
  Transmission Date: 20120928
  Serious: Yes (Other)
  Sender: FDA-Public Use
  Company Number: IT-ALLERGAN-1208145US

PATIENT
  Age: 65 Year
  Sex: Female

DRUGS (3)
  1. LUMIGAN [Suspect]
     Dosage: UNK
     Route: 047
     Dates: start: 20111130, end: 20120201
  2. COMBIGAN [Concomitant]
     Indication: GLAUCOMA
     Dosage: UNK
     Route: 047
  3. LUMIGAN [Suspect]
     Indication: GLAUCOMA
     Dosage: UNK
     Route: 047
     Dates: start: 20120301

REACTIONS (1)
  - VISUAL IMPAIRMENT [None]
